FAERS Safety Report 18051416 (Version 5)
Quarter: 2021Q1

REPORT INFORMATION
  Report Type: Spontaneous
  Country: JP (occurrence: JP)
  Receive Date: 20200721
  Receipt Date: 20210204
  Transmission Date: 20210419
  Serious: Yes (Hospitalization, Other)
  Sender: FDA-Public Use
  Company Number: JP-BRISTOL-MYERS SQUIBB COMPANY-BMS-2019-097988

PATIENT
  Age: 49 Year
  Sex: Male
  Weight: 65 kg

DRUGS (12)
  1. OPDIVO [Suspect]
     Active Substance: NIVOLUMAB
     Dosage: 240 MILLIGRAM, Q2WK
     Route: 041
  2. OPDIVO [Suspect]
     Active Substance: NIVOLUMAB
     Indication: HEAD AND NECK CANCER
     Dosage: 80 MILLIGRAM
     Route: 042
     Dates: start: 20190723, end: 20190723
  3. OPDIVO [Suspect]
     Active Substance: NIVOLUMAB
     Dosage: 240 MILLIGRAM
     Route: 042
     Dates: start: 20200415, end: 20200501
  4. OPDIVO [Suspect]
     Active Substance: NIVOLUMAB
     Dosage: 80 MILLIGRAM
     Route: 042
     Dates: start: 20191113, end: 20191113
  5. OPDIVO [Suspect]
     Active Substance: NIVOLUMAB
     Dosage: 240 MILLIGRAM
     Route: 042
     Dates: start: 20200226, end: 20200312
  6. OPDIVO [Suspect]
     Active Substance: NIVOLUMAB
     Dosage: UNK
     Route: 041
  7. YERVOY [Suspect]
     Active Substance: IPILIMUMAB
     Indication: MALIGNANT MELANOMA
     Dosage: 224 MILLIGRAM
     Route: 041
     Dates: start: 20190723, end: 20190723
  8. YERVOY [Suspect]
     Active Substance: IPILIMUMAB
     Dosage: 192 MILLIGRAM
     Route: 042
     Dates: start: 20191113, end: 20191113
  9. OPDIVO [Suspect]
     Active Substance: NIVOLUMAB
     Indication: MALIGNANT MELANOMA
     Dosage: 3 MILLIGRAM/KILOGRAM
     Route: 041
     Dates: start: 20180606, end: 20190710
  10. YERVOY [Suspect]
     Active Substance: IPILIMUMAB
     Dosage: 224 MILLIGRAM
     Route: 042
     Dates: start: 20190821, end: 20190911
  11. OPDIVO [Suspect]
     Active Substance: NIVOLUMAB
     Dosage: 80 MILLIGRAM
     Route: 042
     Dates: start: 20190821, end: 20190911
  12. OPDIVO [Suspect]
     Active Substance: NIVOLUMAB
     Dosage: 240 MILLIGRAM
     Route: 042
     Dates: start: 20200617, end: 20200617

REACTIONS (10)
  - Limb discomfort [Unknown]
  - Blood albumin decreased [Unknown]
  - Hepatic function abnormal [Recovered/Resolved]
  - Renal impairment [Recovering/Resolving]
  - Weight decreased [Recovering/Resolving]
  - Pyrexia [Recovering/Resolving]
  - Physical deconditioning [Unknown]
  - Decreased appetite [Recovered/Resolved]
  - Arthritis [Recovering/Resolving]
  - Diarrhoea [Recovered/Resolved]

NARRATIVE: CASE EVENT DATE: 20190805
